FAERS Safety Report 6232110-0 (Version None)
Quarter: 2009Q2

REPORT INFORMATION
  Report Type: 
  Country: None (occurrence: None)
  Receive Date: 20090616
  Receipt Date: 20090605
  Transmission Date: 20091009
  Serious: Yes (Hospitalization)
  Sender: FDA-Public Use
  Company Number: US-JNJCH-2009015921

PATIENT
  Sex: Female

DRUGS (1)
  1. NEOSPORIN PLUS PAIN RELIEF MAXIMUM STRENGTH [Suspect]
     Indication: PSORIASIS
     Dosage: TEXT:UNSPECIFIED
     Route: 061

REACTIONS (3)
  - CONDITION AGGRAVATED [None]
  - OFF LABEL USE [None]
  - THERAPEUTIC RESPONSE UNEXPECTED [None]
